FAERS Safety Report 6843406-3 (Version None)
Quarter: 2010Q3

REPORT INFORMATION
  Report Type: 
  Country: None (occurrence: None)
  Receive Date: 20100709
  Receipt Date: 20100628
  Transmission Date: 20110219
  Serious: Yes (Hospitalization)
  Sender: FDA-Public Use
  Company Number: DSJ-2010-10779

PATIENT
  Age: 76 Year
  Sex: Female

DRUGS (7)
  1. BENICAR HCT [Suspect]
     Indication: HYPERTENSION
     Dosage: 20/12, 5 MG (1 IN 1 D), PER ORAL
     Route: 048
     Dates: start: 20060101, end: 20100623
  2. OMEPRAZOLE [Concomitant]
  3. CITALOPRAM HYDROBROMIDE [Concomitant]
  4. SULFATE GLUCOSAMINE/SULFATE CONDROITIN (CHONDROITIN SULFATE, GLUCOSAMI [Concomitant]
  5. ATENOLOL [Concomitant]
  6. STRONTIUM RANELATE (STRONTIUM RANELATE) (STRONTIUIM RANELATE) [Concomitant]
  7. METAMIZOL (METAMIZOLE SODIUM) (METAMIZOLE SODIUM) [Concomitant]

REACTIONS (5)
  - BLOOD PRESSURE INCREASED [None]
  - DRUG INEFFECTIVE [None]
  - HEADACHE [None]
  - HYPERAEMIA [None]
  - OEDEMA PERIPHERAL [None]
